FAERS Safety Report 9442609 (Version 1)
Quarter: 2013Q3

REPORT INFORMATION
  Report Type: Spontaneous
  Country: US (occurrence: US)
  Receive Date: 20130806
  Receipt Date: 20130806
  Transmission Date: 20140515
  Serious: Yes (Hospitalization, Other)
  Sender: FDA-Public Use
  Company Number: US-BAYER-2013-092167

PATIENT
  Age: 0 None
  Sex: Male
  Weight: 3 kg

DRUGS (1)
  1. MIRENA [Suspect]
     Dosage: UNK UNK, CONT
     Route: 064

REACTIONS (4)
  - Respiratory distress [None]
  - Blood gases abnormal [None]
  - Premature baby [None]
  - Exposure during pregnancy [None]
